FAERS Safety Report 7211412-5 (Version None)
Quarter: 2011Q1

REPORT INFORMATION
  Report Type: 
  Country: None (occurrence: None)
  Receive Date: 20110105
  Receipt Date: 20101228
  Transmission Date: 20110831
  Serious: Yes (Other)
  Sender: FDA-Public Use
  Company Number: JP-ABBOTT-09P-087-0594998-00

PATIENT
  Sex: Female
  Weight: 54 kg

DRUGS (7)
  1. ALFACALCIDO [Concomitant]
     Indication: OSTEOPOROSIS
     Dosage: 0.25 MCG, DAILY
     Route: 048
  2. INDOMETACIN FARNESIL [Concomitant]
     Indication: RHEUMATOID ARTHRITIS
     Dosage: 400 MG, DAILY
  3. PREDNISOLONE [Concomitant]
     Indication: RHEUMATOID ARTHRITIS
     Dosage: 4 MG, DAILY
     Route: 048
  4. FURSULTIAMINE [Concomitant]
     Indication: MALAISE
     Dosage: 100 MG, DAILY
     Route: 048
  5. HUMIRA [Suspect]
     Indication: RHEUMATOID ARTHRITIS
     Route: 058
     Dates: start: 20090810, end: 20090810
  6. ALENDRONATE SODIUM [Concomitant]
     Indication: PRODUCT USED FOR UNKNOWN INDICATION
     Route: 048
  7. RABEPRAZOLE SODIUM [Concomitant]
     Indication: PRODUCT USED FOR UNKNOWN INDICATION
     Dosage: 20 MG, DAILY
     Route: 048

REACTIONS (1)
  - STEVENS-JOHNSON SYNDROME [None]
